FAERS Safety Report 24371014 (Version 1)
Quarter: 2024Q3

REPORT INFORMATION
  Report Type: Spontaneous
  Country: US (occurrence: US)
  Receive Date: 20240927
  Receipt Date: 20240927
  Transmission Date: 20241016
  Serious: No
  Sender: RECKITT BENCKISER
  Company Number: US-INDIVIOR US-INDV-145712-2024

PATIENT
  Age: 28 Year
  Sex: Female

DRUGS (2)
  1. PERSERIS [Suspect]
     Active Substance: RISPERIDONE
     Indication: Product used for unknown indication
     Dosage: UNK, QMO
     Route: 058
     Dates: start: 20240618
  2. PERSERIS [Suspect]
     Active Substance: RISPERIDONE

REACTIONS (2)
  - Product administered at inappropriate site [Recovered/Resolved]
  - No adverse event [Unknown]

NARRATIVE: CASE EVENT DATE: 20240618
